FAERS Safety Report 14352339 (Version 1)
Quarter: 2018Q1

REPORT INFORMATION
  Report Type: Spontaneous
  Country: ES (occurrence: ES)
  Receive Date: 20180104
  Receipt Date: 20180104
  Transmission Date: 20180509
  Serious: Yes (Other)
  Sender: FDA-Public Use
  Company Number: ES-MYLANLABS-2018M1000687

PATIENT
  Age: 54 Year
  Sex: Male

DRUGS (1)
  1. CALCITONIN SALMON. [Suspect]
     Active Substance: CALCITONIN SALMON
     Indication: STAPHYLOCOCCAL INFECTION
     Dosage: 200 IU, UNK
     Route: 045

REACTIONS (4)
  - Product use in unapproved indication [Unknown]
  - Osteoma [Unknown]
  - Nasal obstruction [Unknown]
  - Epistaxis [Unknown]
